FAERS Safety Report 25063091 (Version 1)
Quarter: 2025Q1

REPORT INFORMATION
  Report Type: Spontaneous
  Country: US (occurrence: None)
  Receive Date: 20250310
  Receipt Date: 20250310
  Transmission Date: 20250408
  Serious: No
  Sender: FDA-CTU
  Company Number: None

PATIENT
  Sex: Female

DRUGS (1)
  1. VERZENIO [Suspect]
     Active Substance: ABEMACICLIB
     Dosage: FREQUENCY : TWICE A DAY;?
     Route: 048
     Dates: start: 202409

REACTIONS (7)
  - Dry eye [None]
  - Lacrimation increased [None]
  - Gastrooesophageal reflux disease [None]
  - Oropharyngeal pain [None]
  - Dysphonia [None]
  - Diarrhoea [None]
  - Drug ineffective [None]
